FAERS Safety Report 23848841 (Version 1)
Quarter: 2024Q2

REPORT INFORMATION
  Report Type: Spontaneous
  Country: US (occurrence: None)
  Receive Date: 20240511
  Receipt Date: 20240511
  Transmission Date: 20240716
  Serious: Yes (Death)
  Sender: FDA-Public Use
  Company Number: None

PATIENT
  Age: 76 Year
  Sex: Female

DRUGS (1)
  1. LENALIDOMIDE [Suspect]
     Active Substance: LENALIDOMIDE
     Indication: Diffuse large B-cell lymphoma
     Dosage: FREQUENCY : DAILY;?
     Route: 048
     Dates: start: 20240404, end: 20240424

REACTIONS (5)
  - Delirium [None]
  - Dyspnoea [None]
  - Urinary tract infection enterococcal [None]
  - Asthenia [None]
  - Hypophagia [None]

NARRATIVE: CASE EVENT DATE: 20240423
